FAERS Safety Report 9018708 (Version 1)
Quarter: 2013Q1

REPORT INFORMATION
  Report Type: Spontaneous
  Country: PH (occurrence: PH)
  Receive Date: 20130118
  Receipt Date: 20130118
  Transmission Date: 20140127
  Serious: Yes (Death)
  Sender: FDA-Public Use
  Company Number: PHHY2013PH004619

PATIENT
  Age: 45 Year
  Sex: Female

DRUGS (1)
  1. TASIGNA [Suspect]
     Dosage: 800 MG/DAY
     Route: 048
     Dates: start: 20121214

REACTIONS (1)
  - Death [Fatal]
